FAERS Safety Report 6823933-5 (Version None)
Quarter: 2010Q3

REPORT INFORMATION
  Report Type: 
  Country: None (occurrence: None)
  Receive Date: 20100708
  Receipt Date: 20060925
  Transmission Date: 20110219
  Serious: No
  Sender: FDA-Public Use
  Company Number: US-PFIZER INC-2006117743

PATIENT
  Sex: Male

DRUGS (11)
  1. CHANTIX [Suspect]
     Indication: SMOKING CESSATION THERAPY
  2. NITROGLYCERIN [Concomitant]
  3. LEVOTHYROXINE SODIUM [Concomitant]
  4. ACETYLSALICYLIC ACID [Concomitant]
  5. SIMVASTATIN [Concomitant]
  6. MULTI-VITAMINS [Concomitant]
  7. GARLIC [Concomitant]
  8. ZINC [Concomitant]
  9. COREG [Concomitant]
  10. LISINOPRIL [Concomitant]
  11. ALL OTHER THERAPEUTIC PRODUCTS [Concomitant]

REACTIONS (1)
  - FATIGUE [None]
